FAERS Safety Report 6235485-1 (Version None)
Quarter: 2009Q2

REPORT INFORMATION
  Report Type: 
  Country: None (occurrence: None)
  Receive Date: 20090618
  Receipt Date: 20080515
  Transmission Date: 20091009
  Serious: No
  Sender: FDA-Public Use
  Company Number: US-ASTRAZENECA-2008UW10097

PATIENT
  Age: 49 Year
  Sex: Male
  Weight: 74.8 kg

DRUGS (1)
  1. RHINOCORT [Suspect]
     Indication: NASAL CONGESTION
     Dosage: 32 UG 2 SPRAYS EACH NOSTRIL QD
     Route: 045
     Dates: start: 20010101

REACTIONS (1)
  - RHINORRHOEA [None]
